FAERS Safety Report 24700975 (Version 1)
Quarter: 2024Q4

REPORT INFORMATION
  Report Type: Other
  Country: US (occurrence: US)
  Receive Date: 20241205
  Receipt Date: 20241205
  Transmission Date: 20250114
  Serious: Yes (Hospitalization)
  Sender: AIRGAS
  Company Number: US-MLMSERVICE-20241121-PI267080-00253-1

PATIENT
  Sex: Male

DRUGS (1)
  1. OXYGEN [Suspect]
     Active Substance: OXYGEN
     Indication: Radiation necrosis

REACTIONS (2)
  - Apnoea [Recovered/Resolved]
  - Seizure [Recovered/Resolved]
